FAERS Safety Report 11236208 (Version 5)
Quarter: 2016Q2

REPORT INFORMATION
  Report Type: Spontaneous
  Country: CA (occurrence: CA)
  Receive Date: 20150702
  Receipt Date: 20160501
  Transmission Date: 20160815
  Serious: Yes (Life-Threatening, Other)
  Sender: FDA-Public Use
  Company Number: CA-BAXALTA-2015BAX033025

PATIENT
  Sex: Female
  Weight: 45 kg

DRUGS (18)
  1. NIASTASE [Suspect]
     Active Substance: COAGULATION FACTOR VIIA RECOMBINANT HUMAN
     Indication: ACQUIRED HAEMOPHILIA
     Dosage: MAXIMUM DOSE
     Route: 065
  2. ADVATE [Suspect]
     Active Substance: ANTIHEMOPHILIC FACTOR, HUMAN RECOMBINANT
     Indication: OFF LABEL USE
  3. FACTOR VIIA, RECOMBINANT [Suspect]
     Active Substance: COAGULATION FACTOR VIIA RECOMBINANT HUMAN
     Indication: PRODUCT USED FOR UNKNOWN INDICATION
     Dosage: 80MCG/KG
     Route: 042
  4. OBIZUR [Suspect]
     Active Substance: ANTIHEMOPHILIC FACTOR PORCINE, B-DOMAIN TRUNCATED RECOMBINANT
     Indication: GASTROINTESTINAL HAEMORRHAGE
     Dosage: 5000 IU, ONCE
     Route: 042
     Dates: start: 20150617, end: 20150617
  5. DESMOPRESSIN [Concomitant]
     Active Substance: DESMOPRESSIN
     Indication: PRODUCT USED FOR UNKNOWN INDICATION
     Dosage: 0.3 MCG/KG
     Route: 042
  6. OBIZUR [Suspect]
     Active Substance: ANTIHEMOPHILIC FACTOR PORCINE, B-DOMAIN TRUNCATED RECOMBINANT
     Dosage: 5000 IU, ONCE
     Route: 042
     Dates: start: 20150623, end: 20150623
  7. OBIZUR [Suspect]
     Active Substance: ANTIHEMOPHILIC FACTOR PORCINE, B-DOMAIN TRUNCATED RECOMBINANT
     Dosage: 5000 IU, ONCE
     Route: 042
     Dates: start: 20150625, end: 20150625
  8. FEIBA NF [Suspect]
     Active Substance: ANTI-INHIBITOR COAGULANT COMPLEX
     Indication: OFF LABEL USE
     Dosage: 50-75 U/KG
     Route: 042
  9. OBIZUR [Suspect]
     Active Substance: ANTIHEMOPHILIC FACTOR PORCINE, B-DOMAIN TRUNCATED RECOMBINANT
     Indication: FACTOR VIII INHIBITION
     Dosage: 5000 IU, ONCE
     Route: 042
     Dates: start: 20150622, end: 20150622
  10. ADVATE [Suspect]
     Active Substance: ANTIHEMOPHILIC FACTOR, HUMAN RECOMBINANT
     Indication: ACQUIRED HAEMOPHILIA
     Dosage: 50 U/KG
     Route: 065
  11. PROTHROMBIN COMPLEX [Suspect]
     Active Substance: COAGULATION FACTOR IX HUMAN\COAGULATION FACTOR VII HUMAN\COAGULATION FACTOR X HUMAN\PROTEIN C\PROTEIN S HUMAN\PROTHROMBIN
     Indication: PRODUCT USED FOR UNKNOWN INDICATION
  12. FEIBA NF [Suspect]
     Active Substance: ANTI-INHIBITOR COAGULANT COMPLEX
     Indication: ACQUIRED HAEMOPHILIA
     Dosage: MAXIMUM DOSE
     Route: 065
  13. FEIBA NF [Suspect]
     Active Substance: ANTI-INHIBITOR COAGULANT COMPLEX
     Indication: INTRA-ABDOMINAL HAEMORRHAGE
  14. OBIZUR [Suspect]
     Active Substance: ANTIHEMOPHILIC FACTOR PORCINE, B-DOMAIN TRUNCATED RECOMBINANT
     Dosage: 5000 IU, ONCE
     Route: 042
     Dates: start: 20150623, end: 20150623
  15. FACTOR XIII [Suspect]
     Active Substance: FACTOR XIII CONCENTRATE (HUMAN)
     Indication: FACTOR XIII DEFICIENCY
     Route: 065
  16. OBIZUR [Suspect]
     Active Substance: ANTIHEMOPHILIC FACTOR PORCINE, B-DOMAIN TRUNCATED RECOMBINANT
     Indication: INTRA-ABDOMINAL HAEMORRHAGE
     Dosage: 5000 IU, ONCE
     Route: 042
     Dates: start: 20150618, end: 20150618
  17. OBIZUR [Suspect]
     Active Substance: ANTIHEMOPHILIC FACTOR PORCINE, B-DOMAIN TRUNCATED RECOMBINANT
     Dosage: 5000 IU, ONCE
     Route: 042
     Dates: start: 20150624, end: 20150624
  18. NIASTASE [Suspect]
     Active Substance: COAGULATION FACTOR VIIA RECOMBINANT HUMAN
     Indication: INTRA-ABDOMINAL HAEMORRHAGE

REACTIONS (4)
  - Drug effect decreased [Recovered/Resolved]
  - Therapy responder [Recovered/Resolved]
  - Inhibiting antibodies [Recovered/Resolved]
  - Haemorrhage [Recovering/Resolving]
